FAERS Safety Report 15384030 (Version 1)
Quarter: 2018Q3

REPORT INFORMATION
  Report Type: Report from Study
  Country: None (occurrence: FR)
  Receive Date: 20180914
  Receipt Date: 20180914
  Transmission Date: 20181010
  Serious: Yes (Other)
  Sender: FDA-Public Use
  Company Number: FR-ABBVIE-18S-056-2478361-00

PATIENT
  Age: 67 Year
  Sex: Female

DRUGS (1)
  1. DUODOPA [Suspect]
     Active Substance: CARBIDOPA\LEVODOPA
     Indication: PARKINSON^S DISEASE
     Dosage: MD: 6 ML, CFR (CONTINUOUS FLOW RATE) DURING DAY: 6ML/H AND 3ML/H, CFR DURING NIGHT: 6 ML/H
     Route: 050
     Dates: start: 201608

REACTIONS (4)
  - Oxygen saturation decreased [Unknown]
  - Respiratory distress [Unknown]
  - Arthralgia [Unknown]
  - Myalgia [Unknown]

NARRATIVE: CASE EVENT DATE: 20180826
